FAERS Safety Report 13031031 (Version 1)
Quarter: 2016Q4

REPORT INFORMATION
  Report Type: Spontaneous
  Country: IN (occurrence: IN)
  Receive Date: 20161215
  Receipt Date: 20161215
  Transmission Date: 20170207
  Serious: Yes (Other)
  Sender: FDA-Public Use
  Company Number: IN-BION-005781

PATIENT
  Age: 25 Year
  Sex: Male

DRUGS (6)
  1. THIOPENTAL [Concomitant]
     Active Substance: THIOPENTAL
  2. SUXAMETHONIUM [Concomitant]
     Active Substance: SUCCINYLCHOLINE
  3. ATROPINE. [Concomitant]
     Active Substance: ATROPINE
  4. VALPROIC ACID UNKNOWN PRODUCT [Suspect]
     Active Substance: VALPROIC ACID
     Indication: BIPOLAR DISORDER
     Dosage: EXTENDED-RELEASE, INITIALLY STARTED AT 500 MG AND UP-TITRATED TO 1500 MG/DAY
     Route: 048
  5. CHLORPROMAZINE. [Interacting]
     Active Substance: CHLORPROMAZINE
     Indication: BIPOLAR DISORDER
  6. LORAZEPAM. [Concomitant]
     Active Substance: LORAZEPAM
     Indication: BIPOLAR DISORDER

REACTIONS (2)
  - Drug interaction [Unknown]
  - Neuroleptic malignant syndrome [Recovered/Resolved]
